FAERS Safety Report 19674662 (Version 1)
Quarter: 2021Q3

REPORT INFORMATION
  Report Type: Spontaneous
  Country: CA (occurrence: CA)
  Receive Date: 20210809
  Receipt Date: 20210809
  Transmission Date: 20211014
  Serious: Yes (Life-Threatening, Disabling, Other)
  Sender: FDA-Public Use
  Company Number: CA-BAYER-2021-183337

PATIENT
  Age: 25 Year
  Sex: Female
  Weight: 63 kg

DRUGS (1)
  1. MIRENA [Suspect]
     Active Substance: LEVONORGESTREL
     Indication: CONTRACEPTION
     Dosage: 20 ?G, CONT
     Route: 015

REACTIONS (15)
  - Suicidal ideation [Unknown]
  - Headache [Unknown]
  - Depression [Unknown]
  - Gastrooesophageal reflux disease [Unknown]
  - Major depression [Unknown]
  - Genital haemorrhage [Unknown]
  - Breast pain [Unknown]
  - Insomnia [Unknown]
  - Nausea [Unknown]
  - Pain [Unknown]
  - Chest pain [Unknown]
  - Migraine [Unknown]
  - Tachycardia [Unknown]
  - Fatigue [Unknown]
  - Uterine spasm [Unknown]
